FAERS Safety Report 18123114 (Version 2)
Quarter: 2020Q3

REPORT INFORMATION
  Report Type: Spontaneous
  Country: US (occurrence: US)
  Receive Date: 20200807
  Receipt Date: 20200817
  Transmission Date: 20201103
  Serious: Yes (Life-Threatening, Hospitalization, Other)
  Sender: FDA-Public Use
  Company Number: US-ACCORD-194356

PATIENT
  Age: 41 Year
  Sex: Female
  Weight: 79 kg

DRUGS (9)
  1. GLYCOPYRRONIUM [Concomitant]
     Active Substance: GLYCOPYRRONIUM
  2. KETOROLAC [Concomitant]
     Active Substance: KETOROLAC TROMETHAMINE
     Indication: PAIN
     Dosage: 30 MG WAS GIVEN TO REDUCE PAIN
  3. BUPROPION/BUPROPION HYDROCHLORIDE [Suspect]
     Active Substance: BUPROPION HYDROCHLORIDE
     Indication: DEPRESSION
     Dosage: 75 MG DAILY
  4. PROPOFOL. [Suspect]
     Active Substance: PROPOFOL
     Indication: ANAESTHESIA
     Dosage: INDUCTION DOSE OF 150 MG AND CONTINUOUS INFUSION OF 90 ?MCG/KG/MIN
     Route: 042
  5. REMIFENTANIL/REMIFENTANIL HYDROCHLORIDE [Concomitant]
     Active Substance: REMIFENTANIL HYDROCHLORIDE
     Indication: ANAESTHESIA
     Dosage: 0.3 MCG/KG/MIN
  6. SUXAMETHONIUM [Concomitant]
     Active Substance: SUCCINYLCHOLINE
     Indication: ANAESTHESIA
     Dosage: 100 MG
     Route: 042
  7. DECADRON [Concomitant]
     Active Substance: DEXAMETHASONE
     Indication: NAUSEA
     Dosage: 10 MG TO REDUCE NAUSEA
  8. ROCURONIUM/ROCURONIUM BROMIDE [Concomitant]
     Active Substance: ROCURONIUM BROMIDE
     Indication: ANAESTHESIA
     Dosage: 10 MG
     Route: 042
  9. ONDANSETRON [Suspect]
     Active Substance: ONDANSETRON
     Indication: NAUSEA
     Dosage: 4 MG

REACTIONS (1)
  - Dystonia [Recovered/Resolved]
